FAERS Safety Report 6371259-9 (Version None)
Quarter: 2009Q3

REPORT INFORMATION
  Report Type: 
  Country: None (occurrence: None)
  Receive Date: 20090923
  Receipt Date: 20071102
  Transmission Date: 20100115
  Serious: Yes (Hospitalization, Other)
  Sender: FDA-Public Use
  Company Number: US-ASTRAZENECA-2007UW06059

PATIENT
  Age: 19213 Day
  Sex: Female

DRUGS (5)
  1. SEROQUEL [Suspect]
     Indication: DEPRESSION
     Dosage: 25-75 MG BID
     Route: 048
     Dates: start: 20000101
  2. SEROQUEL [Suspect]
     Route: 048
     Dates: start: 20000610
  3. SYNTHROID [Concomitant]
     Dosage: 0.125 - 0.150 MG PER DAY
     Dates: start: 20070615
  4. PREMARIN [Concomitant]
     Dates: start: 20040212
  5. WELLBUTRIN SR [Concomitant]
     Dates: start: 20070115

REACTIONS (1)
  - PANCREATITIS ACUTE [None]
